FAERS Safety Report 22093576 (Version 1)
Quarter: 2023Q1

REPORT INFORMATION
  Report Type: Spontaneous
  Country: US (occurrence: None)
  Receive Date: 20230313
  Receipt Date: 20230313
  Transmission Date: 20230417
  Serious: Yes (Other)
  Sender: FDA-Public Use
  Company Number: None

PATIENT
  Age: 73 Year
  Sex: Male
  Weight: 100.8 kg

DRUGS (1)
  1. RENFLEXIS [Suspect]
     Active Substance: INFLIXIMAB-ABDA
     Indication: Colitis
     Dosage: OTHER FREQUENCY : WEEKS 0, 2, 6, Q8W;?
     Route: 042
     Dates: start: 20230223, end: 20230309

REACTIONS (13)
  - Anxiety [None]
  - Agitation [None]
  - Blood pressure systolic increased [None]
  - Malaise [None]
  - Dyspnoea [None]
  - Tremor [None]
  - Cough [None]
  - Feeling cold [None]
  - Infusion related reaction [None]
  - Wheezing [None]
  - Rales [None]
  - Dyspnoea [None]
  - Dizziness [None]

NARRATIVE: CASE EVENT DATE: 20230309
